FAERS Safety Report 4392927-4 (Version None)
Quarter: 2004Q3

REPORT INFORMATION
  Report Type: 
  Country: None (occurrence: None)
  Receive Date: 20040702
  Receipt Date: 20040416
  Transmission Date: 20050211
  Serious: Yes (Other)
  Sender: FDA-Public Use
  Company Number: 2004UW07720

PATIENT
  Age: 58 Year
  Sex: Male
  Weight: 108.8633 kg

DRUGS (3)
  1. CRESTOR [Suspect]
     Indication: BLOOD CHOLESTEROL INCREASED
     Dosage: 10 MG PO
     Route: 048
     Dates: start: 20040101
  2. ULTRAM [Concomitant]
  3. RELAFEN [Concomitant]

REACTIONS (1)
  - ABDOMINAL PAIN LOWER [None]
